FAERS Safety Report 6636202-3 (Version None)
Quarter: 2010Q1

REPORT INFORMATION
  Report Type: 
  Country: None (occurrence: None)
  Receive Date: 20100311
  Receipt Date: 20100224
  Transmission Date: 20100710
  Serious: Yes (Other)
  Sender: FDA-Public Use
  Company Number: PT10-042-AE

PATIENT
  Age: 63 Year
  Sex: Female
  Weight: 117.9352 kg

DRUGS (3)
  1. FOLIC ACID [Suspect]
     Indication: AMNESIA
     Dosage: 2 MG DAY
     Dates: start: 20100101, end: 20100201
  2. FOLIC ACID [Suspect]
     Indication: ASTHENIA
     Dosage: 2 MG DAY
     Dates: start: 20100101, end: 20100201
  3. PREVACID [Concomitant]

REACTIONS (1)
  - LOSS OF CONSCIOUSNESS [None]
